FAERS Safety Report 5756307-9 (Version None)
Quarter: 2008Q2

REPORT INFORMATION
  Report Type: 
  Country: None (occurrence: None)
  Receive Date: 20080528
  Receipt Date: 20080528
  Transmission Date: 20081010
  Serious: Yes (Disabling)
  Sender: FDA-Public Use
  Company Number: None

PATIENT
  Sex: Female
  Weight: 79.3795 kg

DRUGS (1)
  1. DIGITEK  250 MCG  CVS PHARMACY ARDMORE, OK [Suspect]
     Indication: ATRIAL FIBRILLATION
     Dosage: 1 PILL  ONCE A DAY
     Dates: start: 20070903, end: 20080526

REACTIONS (2)
  - HEPATIC ENZYME INCREASED [None]
  - LIVER DISORDER [None]
